FAERS Safety Report 10148967 (Version 1)
Quarter: 2014Q2

REPORT INFORMATION
  Report Type: Spontaneous
  Country: US (occurrence: US)
  Receive Date: 20140502
  Receipt Date: 20140502
  Transmission Date: 20141212
  Serious: Yes (Other)
  Sender: FDA-Public Use
  Company Number: US-AMGEN INC.-USASP2014031590

PATIENT
  Age: 72 Year
  Sex: Male
  Weight: 114.74 kg

DRUGS (1)
  1. ENBREL [Suspect]
     Indication: RHEUMATOID ARTHRITIS
     Dosage: 50 MG, QWK
     Route: 058
     Dates: start: 2004, end: 20140411

REACTIONS (5)
  - Myocardial infarction [Unknown]
  - Skin ulcer [Unknown]
  - Grip strength decreased [Unknown]
  - Drug effect decreased [Unknown]
  - Limb injury [Unknown]
